FAERS Safety Report 10833503 (Version 3)
Quarter: 2015Q1

REPORT INFORMATION
  Report Type: Spontaneous
  Country: JP (occurrence: JP)
  Receive Date: 20150219
  Receipt Date: 20150310
  Transmission Date: 20150721
  Serious: Yes (Hospitalization)
  Sender: FDA-Public Use
  Company Number: JP-JNJFOC-20141201760

PATIENT
  Age: 77 Year
  Sex: Male

DRUGS (9)
  1. PREDONINE [Concomitant]
     Active Substance: PREDNISOLONE\PREDNISOLONE ACETATE\PREDNISOLONE SODIUM SUCCINATE
     Route: 048
     Dates: start: 20140917
  2. ZYTIGA [Suspect]
     Active Substance: ABIRATERONE ACETATE
     Indication: PROSTATE CANCER
     Route: 048
     Dates: start: 20140917, end: 20141026
  3. FLIVAS OD [Concomitant]
     Dosage: AFTER BREAKFAST
     Route: 048
     Dates: start: 20140917
  4. ZYTIGA [Suspect]
     Active Substance: ABIRATERONE ACETATE
     Indication: PROSTATE CANCER
     Route: 048
     Dates: start: 20141112, end: 20141209
  5. BUP-4 [Concomitant]
     Active Substance: PROPIVERINE
     Dosage: AFTER SUPPER
     Route: 048
     Dates: start: 20140917
  6. FERROUS SULFATE [Concomitant]
     Active Substance: FERROUS SULFATE\FERROUS SULFATE, DRIED
     Dosage: AFTER BREAKFAST
     Route: 048
     Dates: start: 20140917
  7. FAMOTIDINE. [Concomitant]
     Active Substance: FAMOTIDINE
     Dosage: AFTER BREAKFAST AND SUPPER
     Route: 048
     Dates: start: 20140917
  8. ZOLADEX LA [Concomitant]
     Active Substance: GOSERELIN ACETATE
     Route: 065
     Dates: start: 20140917
  9. LOXOPROFEN SODIUM [Concomitant]
     Active Substance: LOXOPROFEN SODIUM
     Dosage: AFTER EACH MEAL
     Route: 048
     Dates: start: 20140917

REACTIONS (2)
  - Pyelonephritis [Unknown]
  - Haematuria [Not Recovered/Not Resolved]

NARRATIVE: CASE EVENT DATE: 20141025
